FAERS Safety Report 5272598-5 (Version None)
Quarter: 2007Q1

REPORT INFORMATION
  Report Type: 
  Country: None (occurrence: None)
  Receive Date: 20061219
  Receipt Date: 20060913
  Transmission Date: 20070707
  Serious: Yes (Hospitalization, Other)
  Sender: FDA-Public Use
  Company Number: US-JNJFOC-20060904325

PATIENT
  Age: 23 Year
  Sex: Female
  Weight: 55.7924 kg

DRUGS (4)
  1. ORTHO EVRA [Suspect]
     Indication: CONTRACEPTION
     Dosage: 1 IN 1 WEEK, TRANSDERMAL
     Route: 062
     Dates: start: 20040909, end: 20041119
  2. TRILEPTAL [Concomitant]
  3. EFFEXOR [Concomitant]
  4. ZYPREXA [Concomitant]

REACTIONS (1)
  - PULMONARY EMBOLISM [None]
